FAERS Safety Report 16894272 (Version 2)
Quarter: 2019Q4

REPORT INFORMATION
  Report Type: Spontaneous
  Country: NO (occurrence: ES)
  Receive Date: 20191008
  Receipt Date: 20191009
  Transmission Date: 20200122
  Serious: Yes (Hospitalization, Other)
  Sender: FDA-Public Use
  Company Number: ES-PFIZER INC-2019423455

PATIENT
  Age: 72 Year
  Sex: Female

DRUGS (2)
  1. ETANERCEPT [Suspect]
     Active Substance: ETANERCEPT
     Indication: PSORIATIC ARTHROPATHY
     Dosage: UNK
  2. METHOTREXATE SODIUM. [Suspect]
     Active Substance: METHOTREXATE SODIUM
     Indication: PSORIATIC ARTHROPATHY
     Dosage: 20 MG, WEEKLY
     Dates: start: 1988

REACTIONS (4)
  - Inflammation [Not Recovered/Not Resolved]
  - Visceral leishmaniasis [Recovered/Resolved]
  - Pancytopenia [Not Recovered/Not Resolved]
  - Hypergammaglobulinaemia [Unknown]

NARRATIVE: CASE EVENT DATE: 201007
